FAERS Safety Report 14310245 (Version 1)
Quarter: 2017Q4

REPORT INFORMATION
  Report Type: Spontaneous
  Country: AT (occurrence: AT)
  Receive Date: 20171220
  Receipt Date: 20171220
  Transmission Date: 20180321
  Serious: Yes (Hospitalization)
  Sender: FDA-Public Use
  Company Number: AT-OTSUKA-2017_026748

PATIENT
  Sex: Female

DRUGS (119)
  1. ABILIFY [Suspect]
     Active Substance: ARIPIPRAZOLE
     Dosage: 5 MG, DAILY
     Route: 065
     Dates: start: 20150105, end: 20151111
  2. ABILIFY [Suspect]
     Active Substance: ARIPIPRAZOLE
     Dosage: 5 MG, UNK
     Route: 048
     Dates: start: 20151107, end: 20151111
  3. TRITTICO [Suspect]
     Active Substance: TRAZODONE HYDROCHLORIDE
     Indication: BIPOLAR DISORDER
     Dosage: 100 MG, UNK
     Route: 048
     Dates: start: 20160119
  4. TRITTICO [Suspect]
     Active Substance: TRAZODONE HYDROCHLORIDE
     Dosage: 250 MG, UNK
     Route: 048
     Dates: start: 20151108, end: 20151108
  5. TRITTICO [Suspect]
     Active Substance: TRAZODONE HYDROCHLORIDE
     Dosage: 300 MG, UNK
     Route: 048
     Dates: start: 20151109, end: 20151202
  6. SYCREST [Interacting]
     Active Substance: ASENAPINE MALEATE
     Dosage: 10 MG, UNK
     Route: 065
     Dates: start: 20151212, end: 20151214
  7. SYCREST [Interacting]
     Active Substance: ASENAPINE MALEATE
     Dosage: 15 MG, UNK
     Route: 065
     Dates: start: 20151215, end: 20151215
  8. LAMICTAL [Concomitant]
     Active Substance: LAMOTRIGINE
     Dosage: 50 MG, UNK
     Route: 048
  9. TEMESTA (LORAZEPAM) [Concomitant]
     Active Substance: LORAZEPAM
     Dosage: 3 MG, UNK
     Route: 048
     Dates: start: 20151123, end: 20151123
  10. NEUROTROP [Concomitant]
     Dosage: 600 MG, UNK
     Route: 048
     Dates: start: 20151123, end: 20151125
  11. TRITTICO [Suspect]
     Active Substance: TRAZODONE HYDROCHLORIDE
     Dosage: 150 MG, UNK
     Route: 048
     Dates: start: 20151107, end: 20151107
  12. ZYPREXA [Interacting]
     Active Substance: OLANZAPINE
     Indication: BIPOLAR I DISORDER
     Dosage: 10 MG, UNK
     Route: 048
     Dates: start: 20151105, end: 20151105
  13. ZYPREXA [Interacting]
     Active Substance: OLANZAPINE
     Dosage: 30 MG, UNK
     Route: 048
     Dates: start: 20151110, end: 20151115
  14. ZYPREXA [Interacting]
     Active Substance: OLANZAPINE
     Dosage: 10 MG, UNK
     Route: 048
     Dates: start: 20151204, end: 20151204
  15. ZELDOX [Interacting]
     Active Substance: ZIPRASIDONE
     Indication: BIPOLAR DISORDER
     Dosage: 20 MG, UNK
     Route: 065
     Dates: start: 20151117, end: 20151117
  16. LAMICTAL [Concomitant]
     Active Substance: LAMOTRIGINE
     Indication: PRODUCT USED FOR UNKNOWN INDICATION
     Dosage: 75 MG, UNK
     Route: 048
     Dates: start: 20151105, end: 20151108
  17. LAMICTAL [Concomitant]
     Active Substance: LAMOTRIGINE
     Dosage: 200 MG, UNK
     Route: 048
     Dates: start: 20151123, end: 20151213
  18. TEMESTA (LORAZEPAM) [Concomitant]
     Active Substance: LORAZEPAM
     Dosage: 7.5 MG, UNK
     Route: 048
     Dates: start: 20151106, end: 20151106
  19. TEMESTA (LORAZEPAM) [Concomitant]
     Active Substance: LORAZEPAM
     Dosage: 7.5 MG, UNK
     Route: 048
     Dates: start: 20151202, end: 20151202
  20. TEMESTA (LORAZEPAM) [Concomitant]
     Active Substance: LORAZEPAM
     Dosage: 3.75 MG, UNK
     Route: 048
     Dates: start: 20151212, end: 20151212
  21. TEMESTA (LORAZEPAM) [Concomitant]
     Active Substance: LORAZEPAM
     Dosage: 3.25 MG, UNK
     Route: 048
     Dates: start: 20151114, end: 20151115
  22. TEMESTA (LORAZEPAM) [Concomitant]
     Active Substance: LORAZEPAM
     Dosage: 5.5 MG, UNK
     Route: 048
     Dates: start: 20151125, end: 20151125
  23. NOZINAN [Concomitant]
     Active Substance: LEVOMEPROMAZINE
     Dosage: 25 MG, UNK
     Route: 065
     Dates: start: 20151122, end: 20151122
  24. NUBAIN [Concomitant]
     Active Substance: NALBUPHINE HYDROCHLORIDE
     Indication: PRODUCT USED FOR UNKNOWN INDICATION
     Dosage: 1 UNK, 1DF IN 100ML NACL
     Route: 065
     Dates: start: 20151204, end: 20151204
  25. NEUROTROP [Concomitant]
     Dosage: 300 MG, UNK
     Route: 048
     Dates: start: 20151126, end: 20151130
  26. INDERAL [Concomitant]
     Active Substance: PROPRANOLOL HYDROCHLORIDE
     Dosage: 30 MG, UNK
     Route: 048
     Dates: start: 20151213, end: 20151214
  27. INDERAL [Concomitant]
     Active Substance: PROPRANOLOL HYDROCHLORIDE
     Dosage: 30 MG, UNK
     Route: 048
     Dates: start: 20151119, end: 20151121
  28. RIVOTRIL [Concomitant]
     Active Substance: CLONAZEPAM
     Dosage: 2 MG, UNK
     Route: 065
     Dates: start: 20151203, end: 20151214
  29. SIFROL [Concomitant]
     Active Substance: PRAMIPEXOLE
     Indication: PRODUCT USED FOR UNKNOWN INDICATION
     Dosage: 0.26 MG, UNK
     Route: 065
     Dates: start: 20151203, end: 20151206
  30. ABILIFY [Suspect]
     Active Substance: ARIPIPRAZOLE
     Dosage: 7.5 MG, UNK
     Route: 048
     Dates: start: 20151112, end: 20151115
  31. ABILIFY [Suspect]
     Active Substance: ARIPIPRAZOLE
     Dosage: 5 MG, UNK
     Route: 048
     Dates: start: 20151117, end: 20151117
  32. CIPRALEX [Suspect]
     Active Substance: ESCITALOPRAM OXALATE
     Indication: BIPOLAR DISORDER
     Dosage: 10 MG, UNK
     Route: 048
     Dates: start: 20151108, end: 20151109
  33. CIPRALEX [Suspect]
     Active Substance: ESCITALOPRAM OXALATE
     Dosage: 10 MG, UNK
     Route: 048
     Dates: start: 20151113, end: 20151120
  34. ZYPREXA [Interacting]
     Active Substance: OLANZAPINE
     Dosage: 10 MG, UNK
     Route: 048
     Dates: start: 20151107, end: 20151107
  35. ZYPREXA [Interacting]
     Active Substance: OLANZAPINE
     Dosage: 20 MG, UNK
     Route: 048
     Dates: start: 20151215, end: 20151215
  36. QUILONIUM R [Interacting]
     Active Substance: LITHIUM CARBONATE
     Dosage: 900 MG, UNK
     Route: 065
     Dates: start: 20151125, end: 20151201
  37. TEMESTA (LORAZEPAM) [Concomitant]
     Active Substance: LORAZEPAM
     Dosage: 8 MG, UNK
     Route: 048
     Dates: start: 20151118, end: 20151119
  38. TEMESTA (LORAZEPAM) [Concomitant]
     Active Substance: LORAZEPAM
     Dosage: 6.25 MG, UNK
     Route: 048
     Dates: start: 20151210, end: 20151211
  39. TEMESTA (LORAZEPAM) [Concomitant]
     Active Substance: LORAZEPAM
     Dosage: 5 MG, UNK
     Route: 048
     Dates: start: 20151213, end: 20151214
  40. TEMESTA (LORAZEPAM) [Concomitant]
     Active Substance: LORAZEPAM
     Dosage: 6.25 MG, UNK
     Route: 048
     Dates: start: 20151108, end: 20151110
  41. NOZINAN [Concomitant]
     Active Substance: LEVOMEPROMAZINE
     Indication: PRODUCT USED FOR UNKNOWN INDICATION
     Dosage: 150 MG, UNK
     Route: 065
     Dates: start: 20151111, end: 20151111
  42. PRAXITEN [Concomitant]
     Active Substance: OXAZEPAM
     Indication: PRODUCT USED FOR UNKNOWN INDICATION
     Dosage: 50 MG, UNK
     Route: 065
     Dates: start: 20151120, end: 20151126
  43. INDERAL [Concomitant]
     Active Substance: PROPRANOLOL HYDROCHLORIDE
     Dosage: 90 MG, UNK
     Route: 048
     Dates: start: 20151208, end: 20151210
  44. RIVOTRIL [Concomitant]
     Active Substance: CLONAZEPAM
     Dosage: 2 MG, UNK
     Route: 065
     Dates: start: 20151104, end: 20151105
  45. SIFROL [Concomitant]
     Active Substance: PRAMIPEXOLE
     Dosage: 0.34 MG, UNK
     Route: 065
     Dates: start: 20151207, end: 20151210
  46. ZYPREXA [Interacting]
     Active Substance: OLANZAPINE
     Dosage: 20 MG, UNK
     Route: 048
     Dates: start: 20151108, end: 20151108
  47. QUILONIUM R [Interacting]
     Active Substance: LITHIUM CARBONATE
     Indication: PRODUCT USED FOR UNKNOWN INDICATION
     Dosage: 400 MG, UNK
     Route: 065
     Dates: start: 20151123, end: 20151124
  48. QUILONIUM R [Interacting]
     Active Substance: LITHIUM CARBONATE
     Dosage: 675 MG, UNK
     Route: 065
     Dates: start: 20151204, end: 20151206
  49. LAMICTAL [Concomitant]
     Active Substance: LAMOTRIGINE
     Dosage: 300 MG, UNK
     Route: 048
  50. TEMESTA (LORAZEPAM) [Concomitant]
     Active Substance: LORAZEPAM
     Indication: PRODUCT USED FOR UNKNOWN INDICATION
     Dosage: 8.75 MG, UNK
     Route: 048
     Dates: start: 20151107, end: 20151107
  51. TEMESTA (LORAZEPAM) [Concomitant]
     Active Substance: LORAZEPAM
     Dosage: 4.5 MG, UNK
     Route: 048
     Dates: start: 20151129, end: 20151130
  52. TEMESTA (LORAZEPAM) [Concomitant]
     Active Substance: LORAZEPAM
     Dosage: 4 MG, UNK
     Route: 048
     Dates: start: 20151121, end: 20151121
  53. TEMESTA (LORAZEPAM) [Concomitant]
     Active Substance: LORAZEPAM
     Dosage: 8.75 MG, UNK
     Route: 048
     Dates: start: 20151207, end: 20151209
  54. TEMESTA (LORAZEPAM) [Concomitant]
     Active Substance: LORAZEPAM
     Dosage: 4 MG, UNK
     Route: 048
     Dates: start: 20151201, end: 20151201
  55. TEMESTA (LORAZEPAM) [Concomitant]
     Active Substance: LORAZEPAM
     Dosage: 5 MG, UNK
     Route: 048
     Dates: start: 20151113, end: 20151113
  56. AKINETON [Concomitant]
     Active Substance: BIPERIDEN HYDROCHLORIDE
     Indication: PRODUCT USED FOR UNKNOWN INDICATION
     Dosage: 4 MG, UNK
     Route: 065
     Dates: start: 20151120, end: 20151120
  57. AKINETON [Concomitant]
     Active Substance: BIPERIDEN HYDROCHLORIDE
     Dosage: 2 MG, UNK
     Route: 065
     Dates: start: 20151202, end: 20151202
  58. RISPERDAL [Concomitant]
     Active Substance: RISPERIDONE
     Indication: BIPOLAR DISORDER
     Dosage: 2 MG, UNK
     Route: 065
     Dates: start: 20151105, end: 20151105
  59. RISPERDAL [Concomitant]
     Active Substance: RISPERIDONE
     Dosage: 1 MG, UNK
     Route: 065
     Dates: start: 20151106, end: 20151106
  60. TRUXAL [Concomitant]
     Active Substance: CHLORPROTHIXENE
     Indication: PRODUCT USED FOR UNKNOWN INDICATION
     Dosage: 50 MG, UNK
     Route: 065
     Dates: start: 20151105, end: 20151105
  61. RIVOTRIL [Concomitant]
     Active Substance: CLONAZEPAM
     Indication: PRODUCT USED FOR UNKNOWN INDICATION
     Dosage: 4 MG, UNK
     Route: 065
     Dates: start: 20151202, end: 20151202
  62. RIVOTRIL [Concomitant]
     Active Substance: CLONAZEPAM
     Dosage: 1 MG, UNK
     Route: 065
     Dates: start: 20151106, end: 20151106
  63. DIBONDRIN [Concomitant]
     Active Substance: DIPHENHYDRAMINE HYDROCHLORIDE
     Indication: PRODUCT USED FOR UNKNOWN INDICATION
     Dosage: 50 MG, UNK
     Route: 065
     Dates: start: 20151109, end: 20151109
  64. DOMINAL (PROTHIPENDYL HYDROCHLORIDE) [Concomitant]
     Active Substance: PROTHIPENDYL HYDROCHLORIDE
     Dosage: 80 MG, UNK
     Route: 048
     Dates: start: 20151115, end: 20151116
  65. DOMINAL (PROTHIPENDYL HYDROCHLORIDE) [Concomitant]
     Active Substance: PROTHIPENDYL HYDROCHLORIDE
     Dosage: 120 MG, UNK
     Route: 048
  66. CIPRALEX [Suspect]
     Active Substance: ESCITALOPRAM OXALATE
     Dosage: 5 MG, UNK
     Route: 048
     Dates: start: 20151112, end: 20151112
  67. TRITTICO [Suspect]
     Active Substance: TRAZODONE HYDROCHLORIDE
     Dosage: 150 MG, UNK
     Route: 048
     Dates: start: 20151203, end: 20160118
  68. SYCREST [Interacting]
     Active Substance: ASENAPINE MALEATE
     Dosage: 15 MG, UNK
     Route: 065
     Dates: start: 20151221, end: 20151230
  69. ZYPREXA [Interacting]
     Active Substance: OLANZAPINE
     Dosage: 30 MG, UNK
     Route: 048
     Dates: start: 20151122, end: 20151202
  70. TEMESTA (LORAZEPAM) [Concomitant]
     Active Substance: LORAZEPAM
     Dosage: 8 MG, UNK
     Route: 048
     Dates: start: 20151124, end: 20151124
  71. TEMESTA (LORAZEPAM) [Concomitant]
     Active Substance: LORAZEPAM
     Dosage: 5.5 MG, UNK
     Route: 048
     Dates: start: 20151122, end: 20151122
  72. NOZINAN [Concomitant]
     Active Substance: LEVOMEPROMAZINE
     Dosage: 100 MG, UNK
     Route: 065
     Dates: start: 20151112, end: 20151112
  73. NOZINAN [Concomitant]
     Active Substance: LEVOMEPROMAZINE
     Dosage: 100 MG, UNK
     Route: 065
     Dates: start: 20151223, end: 20151223
  74. NOZINAN [Concomitant]
     Active Substance: LEVOMEPROMAZINE
     Dosage: 50 MG, UNK
     Route: 065
     Dates: start: 20151129, end: 20151130
  75. LITHIUM. [Concomitant]
     Active Substance: LITHIUM
     Indication: PRODUCT USED FOR UNKNOWN INDICATION
     Dosage: UNK
     Route: 065
  76. INDERAL [Concomitant]
     Active Substance: PROPRANOLOL HYDROCHLORIDE
     Indication: PRODUCT USED FOR UNKNOWN INDICATION
     Dosage: 30 MG, UNK
     Route: 048
     Dates: start: 20151124, end: 20151125
  77. INDERAL [Concomitant]
     Active Substance: PROPRANOLOL HYDROCHLORIDE
     Dosage: 60 MG, UNK
     Route: 048
     Dates: start: 20151202, end: 20151202
  78. ZOLDEM [Concomitant]
     Active Substance: ZOLPIDEM TARTRATE
     Indication: PRODUCT USED FOR UNKNOWN INDICATION
     Dosage: 5 MG, UNK
     Route: 065
     Dates: start: 20151109, end: 20151109
  79. RIVOTRIL [Concomitant]
     Active Substance: CLONAZEPAM
     Dosage: 4 MG, UNK
     Route: 065
     Dates: start: 20151215, end: 20151226
  80. ABILIFY [Suspect]
     Active Substance: ARIPIPRAZOLE
     Dosage: 2.5 MG, UNK
     Route: 065
     Dates: start: 20150105, end: 20150117
  81. CIPRALEX [Suspect]
     Active Substance: ESCITALOPRAM OXALATE
     Dosage: 5 MG, UNK
     Route: 048
     Dates: start: 201511, end: 201511
  82. ZYPREXA [Interacting]
     Active Substance: OLANZAPINE
     Dosage: 25 MG, UNK
     Route: 048
     Dates: start: 20151109, end: 20151109
  83. QUILONIUM R [Interacting]
     Active Substance: LITHIUM CARBONATE
     Dosage: 450 MG, UNK
     Route: 065
     Dates: start: 20151216, end: 20151217
  84. ZELDOX [Interacting]
     Active Substance: ZIPRASIDONE
     Dosage: 40 MG, UNK
     Route: 065
     Dates: start: 20151118, end: 20151118
  85. FLUCTINE [Suspect]
     Active Substance: FLUOXETINE HYDROCHLORIDE
     Indication: PRODUCT USED FOR UNKNOWN INDICATION
     Dosage: 20 MG, UNK
     Route: 065
     Dates: start: 20151122, end: 20151123
  86. LAMICTAL [Concomitant]
     Active Substance: LAMOTRIGINE
     Dosage: 100 MG, UNK
     Route: 048
     Dates: start: 20151109, end: 20151122
  87. TEMESTA (LORAZEPAM) [Concomitant]
     Active Substance: LORAZEPAM
     Dosage: 5.5 MG, UNK
     Route: 048
     Dates: start: 20151117, end: 20151117
  88. TEMESTA (LORAZEPAM) [Concomitant]
     Active Substance: LORAZEPAM
     Dosage: 3.75 MG, UNK
     Route: 048
     Dates: start: 20151215, end: 20151222
  89. TEMESTA (LORAZEPAM) [Concomitant]
     Active Substance: LORAZEPAM
     Dosage: 3 MG, UNK
     Route: 048
     Dates: start: 20151120, end: 20151120
  90. TEMESTA (LORAZEPAM) [Concomitant]
     Active Substance: LORAZEPAM
     Dosage: 6.5 MG, UNK
     Route: 048
     Dates: start: 20151128, end: 20151128
  91. PRAXITEN [Concomitant]
     Active Substance: OXAZEPAM
     Dosage: 25 MG, UNK
     Route: 065
     Dates: start: 20151127, end: 20151214
  92. ABILIFY [Suspect]
     Active Substance: ARIPIPRAZOLE
     Indication: BIPOLAR DISORDER
     Dosage: 2.5 MG, UNK
     Route: 048
     Dates: start: 20151105, end: 20151106
  93. ABILIFY [Suspect]
     Active Substance: ARIPIPRAZOLE
     Dosage: 10 MG, UNK
     Route: 048
     Dates: start: 20151116, end: 20151116
  94. SYCREST [Interacting]
     Active Substance: ASENAPINE MALEATE
     Indication: PRODUCT USED FOR UNKNOWN INDICATION
     Dosage: 5 MG, UNK
     Route: 065
     Dates: start: 20151210, end: 20151211
  95. SYCREST [Interacting]
     Active Substance: ASENAPINE MALEATE
     Dosage: 20 MG, UNK
     Route: 065
     Dates: start: 20151216, end: 20151220
  96. ZYPREXA [Interacting]
     Active Substance: OLANZAPINE
     Dosage: 20 MG, UNK
     Route: 048
     Dates: start: 20151116, end: 20151121
  97. ZYPREXA [Interacting]
     Active Substance: OLANZAPINE
     Dosage: 20 MG, UNK
     Route: 048
     Dates: start: 20151203, end: 20151203
  98. ZELDOX [Interacting]
     Active Substance: ZIPRASIDONE
     Dosage: 80 MG, UNK
     Route: 065
     Dates: start: 20151119, end: 20151119
  99. LAMICTAL [Concomitant]
     Active Substance: LAMOTRIGINE
     Dosage: 250 MG, UNK
     Route: 048
     Dates: start: 20151214, end: 20151214
  100. TEMESTA (LORAZEPAM) [Concomitant]
     Active Substance: LORAZEPAM
     Dosage: 3 MG, UNK
     Route: 048
     Dates: end: 20151227
  101. TEMESTA (LORAZEPAM) [Concomitant]
     Active Substance: LORAZEPAM
     Dosage: 4.5 MG, UNK
     Route: 048
     Dates: start: 20151126, end: 20151127
  102. TEMESTA (LORAZEPAM) [Concomitant]
     Active Substance: LORAZEPAM
     Dosage: 8.75 MG, UNK
     Route: 048
     Dates: start: 20151111, end: 20151111
  103. GASTROZEPIN [Concomitant]
     Active Substance: PIRENZEPINE HYDROCHLORIDE
     Indication: PRODUCT USED FOR UNKNOWN INDICATION
     Dosage: 100 MG, UNK
     Route: 065
     Dates: start: 20151217, end: 20151221
  104. NEUROTROP [Concomitant]
     Dosage: 900 MG, UNK
     Route: 048
     Dates: start: 20151111, end: 20151122
  105. NEUROTROP [Concomitant]
     Dosage: 900 MG, UNK
     Route: 048
  106. INDERAL [Concomitant]
     Active Substance: PROPRANOLOL HYDROCHLORIDE
     Dosage: 40 MG, UNK
     Route: 048
     Dates: start: 20151212, end: 20151212
  107. DOMINAL (PROTHIPENDYL HYDROCHLORIDE) [Concomitant]
     Active Substance: PROTHIPENDYL HYDROCHLORIDE
     Dosage: 160 MG, UNK
     Route: 048
     Dates: start: 20151117, end: 20151121
  108. ZELDOX [Interacting]
     Active Substance: ZIPRASIDONE
     Dosage: 120 MG, UNK
     Route: 065
     Dates: start: 20151120, end: 20151121
  109. TEMESTA (LORAZEPAM) [Concomitant]
     Active Substance: LORAZEPAM
     Dosage: 3.75 MG, UNK
     Route: 048
     Dates: start: 20151112, end: 20151112
  110. TEMESTA (LORAZEPAM) [Concomitant]
     Active Substance: LORAZEPAM
     Dosage: 3 MG, UNK
     Route: 048
     Dates: start: 20151116, end: 20151116
  111. TEMESTA (LORAZEPAM) [Concomitant]
     Active Substance: LORAZEPAM
     Dosage: 10 MG, UNK
     Route: 048
     Dates: start: 20151203, end: 20151206
  112. AKINETON [Concomitant]
     Active Substance: BIPERIDEN HYDROCHLORIDE
     Dosage: UNK
     Route: 065
  113. AKINETON [Concomitant]
     Active Substance: BIPERIDEN HYDROCHLORIDE
     Dosage: 2 MG, UNK
     Route: 065
     Dates: start: 20151221, end: 20151221
  114. NEUROTROP [Concomitant]
     Indication: PRODUCT USED FOR UNKNOWN INDICATION
     Dosage: 600 MG, UNK
     Route: 048
     Dates: start: 20151109, end: 20151110
  115. INDERAL [Concomitant]
     Active Substance: PROPRANOLOL HYDROCHLORIDE
     Dosage: 40 MG, UNK
     Route: 048
     Dates: start: 20151203, end: 20151207
  116. INDERAL [Concomitant]
     Active Substance: PROPRANOLOL HYDROCHLORIDE
     Dosage: 50 MG, UNK
     Route: 048
     Dates: start: 20151111, end: 20151111
  117. INDERAL [Concomitant]
     Active Substance: PROPRANOLOL HYDROCHLORIDE
     Dosage: 20 MG, UNK
     Route: 048
     Dates: start: 20151215, end: 20151215
  118. ADASUVE [Concomitant]
     Active Substance: LOXAPINE
     Indication: PRODUCT USED FOR UNKNOWN INDICATION
     Dosage: UNK
     Route: 065
  119. DOMINAL (PROTHIPENDYL HYDROCHLORIDE) [Concomitant]
     Active Substance: PROTHIPENDYL HYDROCHLORIDE
     Indication: PRODUCT USED FOR UNKNOWN INDICATION
     Dosage: 160 MG, UNK
     Route: 048
     Dates: start: 20151105, end: 20151106

REACTIONS (5)
  - Drug interaction [Unknown]
  - Gamma-glutamyltransferase increased [Recovered/Resolved]
  - Akathisia [Recovered/Resolved]
  - Alanine aminotransferase increased [Recovered/Resolved]
  - Blood alkaline phosphatase increased [Recovered/Resolved]

NARRATIVE: CASE EVENT DATE: 20151105
